FAERS Safety Report 9704002 (Version 1)
Quarter: 2013Q4

REPORT INFORMATION
  Report Type: Spontaneous
  Country: US (occurrence: None)
  Receive Date: 20131121
  Receipt Date: 20131121
  Transmission Date: 20140711
  Serious: Yes (Hospitalization)
  Sender: FDA-Public Use
  Company Number: None

PATIENT
  Age: 48 Year
  Sex: Male

DRUGS (3)
  1. NAFCILLIN [Suspect]
     Indication: ENDOCARDITIS
     Route: 042
     Dates: start: 20110914, end: 20110920
  2. NYSTATIN [Concomitant]
  3. ACETAMINOPHEN [Concomitant]

REACTIONS (1)
  - Tubulointerstitial nephritis [None]
